FAERS Safety Report 23858342 (Version 1)
Quarter: 2024Q2

REPORT INFORMATION
  Report Type: Spontaneous
  Country: CN (occurrence: CN)
  Receive Date: 20240515
  Receipt Date: 20240515
  Transmission Date: 20240716
  Serious: Yes (Hospitalization)
  Sender: FDA-Public Use
  Company Number: CN-PFIZER INC-PV202400062107

PATIENT
  Age: 44 Year
  Sex: Female
  Weight: 56.5 kg

DRUGS (1)
  1. METHOTREXATE SODIUM [Suspect]
     Active Substance: METHOTREXATE SODIUM
     Indication: Ectopic pregnancy
     Dosage: 75 MG, 1X/7DAYS
     Route: 030
     Dates: start: 20240415, end: 20240422

REACTIONS (2)
  - Liver injury [Unknown]
  - Off label use [Unknown]

NARRATIVE: CASE EVENT DATE: 20240415
